FAERS Safety Report 7634316-2 (Version None)
Quarter: 2011Q3

REPORT INFORMATION
  Report Type: 
  Country: None (occurrence: None)
  Receive Date: 20110725
  Receipt Date: 20110719
  Transmission Date: 20111222
  Serious: Yes (Other)
  Sender: FDA-Public Use
  Company Number: BR-PFIZER INC-2010103932

PATIENT
  Age: 69 Year
  Sex: Female
  Weight: 53 kg

DRUGS (3)
  1. ASPIRIN [Concomitant]
     Indication: COAGULOPATHY
     Dosage: 100 MG, UNK
     Dates: start: 20100101
  2. LEXAPRO [Concomitant]
     Indication: ANXIETY
     Dosage: 1 DF, 1X/DAY
     Dates: start: 20060101
  3. LIPITOR [Suspect]
     Indication: BLOOD CHOLESTEROL INCREASED
     Dosage: 10 MG, 1X/DAY
     Route: 048
     Dates: start: 20000101

REACTIONS (10)
  - ABNORMAL DREAMS [None]
  - DEPRESSION [None]
  - ANXIETY [None]
  - TENSION [None]
  - NIGHTMARE [None]
  - OSTEOPENIA [None]
  - ARTERIOSCLEROSIS [None]
  - DEPRESSED MOOD [None]
  - HYPOTHYROIDISM [None]
  - CONSTIPATION [None]
